FAERS Safety Report 13278203 (Version 12)
Quarter: 2019Q1

REPORT INFORMATION
  Report Type: Report from Study
  Country: JP (occurrence: JP)
  Receive Date: 20170228
  Receipt Date: 20190315
  Transmission Date: 20190417
  Serious: Yes (Hospitalization, Disabling, Other)
  Sender: FDA-Public Use
  Company Number: JP-CELGENEUS-JPN-2017026694

PATIENT
  Age: 69 Year
  Sex: Male

DRUGS (28)
  1. REVLIMID [Suspect]
     Active Substance: LENALIDOMIDE
     Dosage: 10 MILLIGRAM
     Route: 048
     Dates: start: 20171229, end: 20180118
  2. REVLIMID [Suspect]
     Active Substance: LENALIDOMIDE
     Dosage: 10 MILLIGRAM
     Route: 048
     Dates: start: 20180420, end: 20180510
  3. OLOPATADINE. [Concomitant]
     Active Substance: OLOPATADINE
     Indication: PROPHYLAXIS
     Route: 048
  4. REVLIMID [Suspect]
     Active Substance: LENALIDOMIDE
     Dosage: 10 MILLIGRAM
     Route: 048
     Dates: start: 20170505, end: 20170525
  5. REVLIMID [Suspect]
     Active Substance: LENALIDOMIDE
     Dosage: 10 MILLIGRAM
     Route: 048
     Dates: start: 20170630, end: 20170720
  6. LENADEX [Suspect]
     Active Substance: DEXAMETHASONE ACETATE
     Dosage: 8 MILLIGRAM
     Route: 048
     Dates: start: 20170203, end: 20170224
  7. LENADEX [Suspect]
     Active Substance: DEXAMETHASONE ACETATE
     Dosage: 4 MILLIGRAM
     Route: 048
     Dates: start: 20170602, end: 20171124
  8. REVLIMID [Suspect]
     Active Substance: LENALIDOMIDE
     Dosage: 10 MILLIGRAM
     Route: 048
     Dates: start: 20180518, end: 20180607
  9. REVLIMID [Suspect]
     Active Substance: LENALIDOMIDE
     Dosage: 10 MILLIGRAM
     Route: 048
     Dates: start: 20170202, end: 20170215
  10. REVLIMID [Suspect]
     Active Substance: LENALIDOMIDE
     Dosage: 10 MILLIGRAM
     Route: 048
     Dates: start: 20170309, end: 20170329
  11. REVLIMID [Suspect]
     Active Substance: LENALIDOMIDE
     Dosage: 10 MILLIGRAM
     Route: 048
     Dates: start: 20170728, end: 20170817
  12. REVLIMID [Suspect]
     Active Substance: LENALIDOMIDE
     Dosage: 10 MILLIGRAM
     Route: 048
     Dates: start: 20170406, end: 20170426
  13. REVLIMID [Suspect]
     Active Substance: LENALIDOMIDE
     Dosage: 10 MILLIGRAM
     Route: 048
     Dates: start: 20170825, end: 20170914
  14. REVLIMID [Suspect]
     Active Substance: LENALIDOMIDE
     Dosage: 10 MILLIGRAM
     Route: 048
     Dates: start: 20171013, end: 20171102
  15. REVLIMID [Suspect]
     Active Substance: LENALIDOMIDE
     Dosage: 10 MILLIGRAM
     Route: 048
     Dates: start: 20171110, end: 20171130
  16. LENADEX [Suspect]
     Active Substance: DEXAMETHASONE ACETATE
     Dosage: 4 MILLIGRAM
     Route: 048
     Dates: end: 20180706
  17. LENADEX [Suspect]
     Active Substance: DEXAMETHASONE ACETATE
     Dosage: 4 MILLIGRAM
     Route: 048
     Dates: start: 20170310, end: 20170310
  18. REVLIMID [Suspect]
     Active Substance: LENALIDOMIDE
     Indication: PLASMA CELL MYELOMA
     Dosage: 10 MILLIGRAM
     Route: 048
     Dates: start: 20161201, end: 20161221
  19. REVLIMID [Suspect]
     Active Substance: LENALIDOMIDE
     Dosage: 10 MILLIGRAM
     Route: 048
     Dates: start: 20170105, end: 20170125
  20. REVLIMID [Suspect]
     Active Substance: LENALIDOMIDE
     Dosage: 10 MILLIGRAM
     Route: 048
     Dates: start: 20170602, end: 20170622
  21. REVLIMID [Suspect]
     Active Substance: LENALIDOMIDE
     Dosage: 10 MILLIGRAM
     Route: 048
     Dates: start: 20180323, end: 20180412
  22. LENADEX [Suspect]
     Active Substance: DEXAMETHASONE ACETATE
     Indication: PLASMA CELL MYELOMA
     Dosage: 16 MILLIGRAM
     Route: 048
     Dates: start: 20161202, end: 20170127
  23. LENADEX [Suspect]
     Active Substance: DEXAMETHASONE ACETATE
     Dosage: 4 MILLIGRAM
     Route: 048
     Dates: start: 20170407
  24. REVLIMID [Suspect]
     Active Substance: LENALIDOMIDE
     Dosage: 10 MILLIGRAM
     Route: 048
     Dates: start: 20180126, end: 20180215
  25. REVLIMID [Suspect]
     Active Substance: LENALIDOMIDE
     Dosage: 10 MILLIGRAM
     Route: 048
     Dates: start: 20180223, end: 20180315
  26. REVLIMID [Suspect]
     Active Substance: LENALIDOMIDE
     Dosage: 10 MILLIGRAM
     Route: 048
     Dates: start: 20180614, end: 20180704
  27. BAYASPIRIN [Suspect]
     Active Substance: ASPIRIN
     Indication: ANGINA PECTORIS
     Dosage: 100 MILLIGRAM
     Route: 048
  28. ALLELOCK [Concomitant]
     Active Substance: OLOPATADINE HYDROCHLORIDE
     Indication: PROPHYLAXIS
     Route: 048

REACTIONS (7)
  - Road traffic accident [Unknown]
  - Cognitive disorder [Not Recovered/Not Resolved]
  - Infection [Recovering/Resolving]
  - Parkinsonism [Not Recovered/Not Resolved]
  - Blood immunoglobulin G increased [Recovering/Resolving]
  - Fall [Recovering/Resolving]
  - Gastric mucosal lesion [Recovering/Resolving]

NARRATIVE: CASE EVENT DATE: 2017
